FAERS Safety Report 9310168 (Version 1)
Quarter: 2013Q2

REPORT INFORMATION
  Report Type: Spontaneous
  Country: US (occurrence: US)
  Receive Date: 20130527
  Receipt Date: 20130527
  Transmission Date: 20140414
  Serious: No
  Sender: FDA-Public Use
  Company Number: US-009507513-1305USA014174

PATIENT
  Sex: Female

DRUGS (5)
  1. JANUVIA [Suspect]
     Indication: DIABETES MELLITUS
     Dosage: 100 MG, QD
     Route: 048
     Dates: start: 200805
  2. JANUVIA [Suspect]
     Dosage: HALF 100 MG TABLET, ONCE A DAY
     Route: 048
     Dates: end: 20130523
  3. SIMVASTATIN [Concomitant]
  4. PROPRANOLOL HYDROCHLORIDE [Concomitant]
  5. VITAMIN D (UNSPECIFIED) [Concomitant]

REACTIONS (3)
  - Cardiac disorder [Not Recovered/Not Resolved]
  - Weight decreased [Unknown]
  - Wrong technique in drug usage process [Unknown]
